FAERS Safety Report 8115000-8 (Version None)
Quarter: 2012Q1

REPORT INFORMATION
  Report Type: 
  Country: None (occurrence: None)
  Receive Date: 20120206
  Receipt Date: 20120125
  Transmission Date: 20120608
  Serious: Yes (Hospitalization)
  Sender: FDA-Public Use
  Company Number: JP-BRISTOL-MYERS SQUIBB COMPANY-16376105

PATIENT
  Age: 70 Year
  Sex: Male

DRUGS (2)
  1. LONASEN [Concomitant]
  2. ABILIFY [Suspect]
     Indication: SCHIZOPHRENIA
     Route: 048

REACTIONS (1)
  - NEPHROTIC SYNDROME [None]
